FAERS Safety Report 17201458 (Version 1)
Quarter: 2019Q4

REPORT INFORMATION
  Report Type: Spontaneous
  Country: US (occurrence: US)
  Receive Date: 20191218
  Receipt Date: 20191218
  Transmission Date: 20200122
  Serious: No
  Sender: FDA-Public Use
  Company Number: None

PATIENT
  Age: 79 Year
  Sex: Male

DRUGS (2)
  1. INDUCTION 4 TO 1 HIGH K (50 MEQ) IN PLASMALYTE A, PH 7.4 WITH TROMETHAMINE [Suspect]
     Active Substance: DEXTROSE MONOHYDRATE\MAGNESIUM CHLORIDE\MAGNESIUM SULFATE HEPTAHYDRATE\MANNITOL\POTASSIUM CHLORIDE\SODIUM ACETATE\SODIUM CHLORIDE\SODIUM GLUCONATE\TROMETHAMINE
     Indication: CARDIOPLEGIA
     Dates: start: 20191217
  2. INDUCTION 4 TO 1 HIGH K (50 MEQ) IN PLASMALYTE A, PH 7.4 WITH TROMETHAMINE [Suspect]
     Active Substance: DEXTROSE MONOHYDRATE\MAGNESIUM CHLORIDE\MAGNESIUM SULFATE HEPTAHYDRATE\MANNITOL\POTASSIUM CHLORIDE\SODIUM ACETATE\SODIUM CHLORIDE\SODIUM GLUCONATE\TROMETHAMINE
     Indication: CARDIAC OPERATION
     Dates: start: 20191217

REACTIONS (1)
  - Drug ineffective [None]

NARRATIVE: CASE EVENT DATE: 20191217
